FAERS Safety Report 8347876-3 (Version None)
Quarter: 2012Q2

REPORT INFORMATION
  Report Type: 
  Country: None (occurrence: None)
  Receive Date: 20120509
  Receipt Date: 20120426
  Transmission Date: 20120825
  Serious: Yes (Hospitalization, Other)
  Sender: FDA-Public Use
  Company Number: US-ELI_LILLY_AND_COMPANY-US201204009628

PATIENT
  Age: 73 Year
  Sex: Female

DRUGS (13)
  1. TRIGLIDE [Concomitant]
  2. TEMAZEPAM [Concomitant]
  3. NEXIUM [Concomitant]
  4. FOSAMAX [Concomitant]
  5. LASIX [Concomitant]
  6. HYDROCODONE BITARTRATE + ACETAMINOPHEN [Concomitant]
  7. GABAPENTIN [Concomitant]
  8. FORTEO [Suspect]
     Indication: OSTEOPOROSIS
     Dosage: 20 UG, QD
     Dates: start: 20120301, end: 20120417
  9. SURFAK [Concomitant]
     Dosage: 240 MG, UNKNOWN
  10. SYNTHROID [Concomitant]
  11. ATENOLOL [Concomitant]
  12. SIMVASTATIN [Concomitant]
  13. DICLOFENAC SODIUM [Concomitant]

REACTIONS (2)
  - URINARY TRACT INFECTION [None]
  - MYOCARDIAL INFARCTION [None]
